FAERS Safety Report 4676216-6 (Version None)
Quarter: 2005Q2

REPORT INFORMATION
  Report Type: 
  Country: None (occurrence: None)
  Receive Date: 20050527
  Receipt Date: 20050120
  Transmission Date: 20051028
  Serious: Yes (Other)
  Sender: FDA-Public Use
  Company Number: US-GLAXOSMITHKLINE-A0542863A

PATIENT
  Age: 50 Year
  Sex: Male

DRUGS (3)
  1. WELLBUTRIN XL [Suspect]
     Indication: ILL-DEFINED DISORDER
     Dosage: 300MG PER DAY
     Route: 048
     Dates: start: 20020101, end: 20041215
  2. ANTI-VIRAL MEDICATION [Concomitant]
     Route: 065
  3. TOPROL-XL [Concomitant]
     Route: 065

REACTIONS (3)
  - AMNESIA [None]
  - GRAND MAL CONVULSION [None]
  - TONGUE BITING [None]
